FAERS Safety Report 8199772-2 (Version None)
Quarter: 2012Q1

REPORT INFORMATION
  Report Type: 
  Country: None (occurrence: None)
  Receive Date: 20120312
  Receipt Date: 20120301
  Transmission Date: 20120608
  Serious: Yes (Other)
  Sender: FDA-Public Use
  Company Number: JP-BRISTOL-MYERS SQUIBB COMPANY-16431249

PATIENT
  Age: 61 Year
  Sex: Male

DRUGS (2)
  1. METFORMIN HCL [Suspect]
     Indication: DIABETES MELLITUS
     Dosage: 6 TABS FORM: TABS DURATION: 1 WK
     Route: 048
  2. EDARAVONE [Suspect]
     Dosage: 3-METHYL-1-PHENYL-2-PYRAZOLIN-5-ONE

REACTIONS (1)
  - RENAL IMPAIRMENT [None]
